FAERS Safety Report 7273208-8 (Version None)
Quarter: 2011Q1

REPORT INFORMATION
  Report Type: 
  Country: None (occurrence: None)
  Receive Date: 20110203
  Receipt Date: 20110131
  Transmission Date: 20110831
  Serious: Yes (Other)
  Sender: FDA-Public Use
  Company Number: US-PFIZER INC-2011022373

PATIENT
  Sex: Female
  Weight: 71.655 kg

DRUGS (5)
  1. LEVOTHYROXINE [Concomitant]
     Indication: THYROID DISORDER
     Dosage: UNK
  2. LYRICA [Suspect]
     Indication: NERVE INJURY
     Dosage: 50 MG, 3X/DAY
     Route: 048
     Dates: start: 20100401
  3. PRAVASTATIN [Concomitant]
     Indication: BLOOD CHOLESTEROL INCREASED
     Dosage: UNK
  4. CYMBALTA [Concomitant]
     Indication: NEURALGIA
     Dosage: UNK
  5. HYDROCODONE [Concomitant]
     Indication: PAIN
     Dosage: UNK

REACTIONS (7)
  - ARTHROPATHY [None]
  - MUSCULOSKELETAL DISCOMFORT [None]
  - BLOOD CHOLESTEROL ABNORMAL [None]
  - WEIGHT INCREASED [None]
  - POLLAKIURIA [None]
  - DECREASED APPETITE [None]
  - SEDATION [None]
